FAERS Safety Report 18673586 (Version 2)
Quarter: 2022Q3

REPORT INFORMATION
  Report Type: Spontaneous
  Country: US (occurrence: US)
  Receive Date: 20201229
  Receipt Date: 20220930
  Transmission Date: 20221027
  Serious: Yes (Death, Other)
  Sender: FDA-Public Use
  Company Number: US-SAARTEMIS-SAC202012240296

PATIENT
  Age: 41 Year
  Sex: Male

DRUGS (2)
  1. ZANTAC [Suspect]
     Active Substance: RANITIDINE HYDROCHLORIDE
     Indication: Dyspepsia
     Dosage: 150 MG,PERIODS OF NON-USE (AT LEAST 3 MONTHS WITHOUT USE)
     Dates: start: 200908, end: 201808
  2. ZANTAC [Suspect]
     Active Substance: RANITIDINE HYDROCHLORIDE
     Indication: Gastrooesophageal reflux disease

REACTIONS (1)
  - Metastatic gastric cancer [Fatal]

NARRATIVE: CASE EVENT DATE: 20150618
